FAERS Safety Report 24664970 (Version 2)
Quarter: 2024Q4

REPORT INFORMATION
  Report Type: Spontaneous
  Country: JP (occurrence: JP)
  Receive Date: 20241126
  Receipt Date: 20241220
  Transmission Date: 20250115
  Serious: Yes (Hospitalization)
  Sender: REGENERON
  Company Number: JP-BAYER-2024A166999

PATIENT
  Age: 6 Decade
  Sex: Male

DRUGS (2)
  1. EYLEA HD [Suspect]
     Active Substance: AFLIBERCEPT
     Indication: Diabetic retinal oedema
     Dosage: 8 MG, ONCE, RIGHT EYE, SOLUTION FOR INJECTION, 114.3 MG/ML
     Route: 031
     Dates: start: 20241003, end: 20241003
  2. EYLEA HD [Suspect]
     Active Substance: AFLIBERCEPT
     Dosage: 8 MG, ONCE, LEFT EYE, SOLUTION FOR INJECTION, 114.3 MG/ML
     Route: 031
     Dates: start: 20241031, end: 20241031

REACTIONS (4)
  - Epilepsy [Recovered/Resolved]
  - Seizure [Recovered/Resolved]
  - Epilepsy [Recovered/Resolved]
  - Seizure [Recovered/Resolved]

NARRATIVE: CASE EVENT DATE: 20241010
